FAERS Safety Report 8181569-0 (Version None)
Quarter: 2012Q1

REPORT INFORMATION
  Report Type: 
  Country: None (occurrence: None)
  Receive Date: 20120302
  Receipt Date: 20120228
  Transmission Date: 20120608
  Serious: Yes (Hospitalization)
  Sender: FDA-Public Use
  Company Number: US-PFIZER INC-2012053018

PATIENT
  Sex: Male
  Weight: 90.703 kg

DRUGS (5)
  1. ALBUTEROL [Concomitant]
     Dosage: UNK
  2. INSULIN [Concomitant]
     Dosage: UNK
  3. VICODIN [Concomitant]
     Dosage: UNK
  4. DILANTIN [Suspect]
     Indication: CONVULSION
     Dosage: 100 MG, 3X/DAY
     Route: 048
     Dates: start: 20050301, end: 20120216
  5. LISINOPRIL [Concomitant]
     Dosage: UNK

REACTIONS (1)
  - CONVULSION [None]
